FAERS Safety Report 5472226-X (Version None)
Quarter: 2007Q3

REPORT INFORMATION
  Report Type: 
  Country: None (occurrence: None)
  Receive Date: 20070926
  Receipt Date: 20070910
  Transmission Date: 20080115
  Serious: Yes (Other)
  Sender: FDA-Public Use
  Company Number: 013817

PATIENT
  Age: 29 Year
  Sex: Female
  Weight: 61.2 kg

DRUGS (2)
  1. CLARAVIS [Suspect]
     Dosage: 40 MG, QD, ORAL; 80 MG, QD, ORAL; 40 MG, QD, ORAL
     Route: 048
     Dates: end: 20070528
  2. CLARAVIS [Suspect]
     Dosage: 40 MG, QD, ORAL; 80 MG, QD, ORAL; 40 MG, QD, ORAL
     Route: 048
     Dates: start: 20070330

REACTIONS (9)
  - ABORTION INDUCED [None]
  - ARTHRALGIA [None]
  - CHEST DISCOMFORT [None]
  - CONSTIPATION [None]
  - DEVICE FAILURE [None]
  - DYSPEPSIA [None]
  - LIP DRY [None]
  - OESOPHAGEAL SPASM [None]
  - UNINTENDED PREGNANCY [None]
